FAERS Safety Report 6287599-8 (Version None)
Quarter: 2009Q3

REPORT INFORMATION
  Report Type: 
  Country: None (occurrence: None)
  Receive Date: 20090727
  Receipt Date: 20090727
  Transmission Date: 20100115
  Serious: Yes (Other)
  Sender: FDA-Public Use
  Company Number: None

PATIENT
  Sex: Female
  Weight: 48.5349 kg

DRUGS (1)
  1. ARANESP [Suspect]
     Indication: ANAEMIA
     Dosage: ONE VIAL INJECTION ONCE THIS PRODUCT CAN CAUSE DEATH
     Dates: start: 20090519

REACTIONS (6)
  - ATRIAL FIBRILLATION [None]
  - HAEMATOCRIT DECREASED [None]
  - HAEMOGLOBIN DECREASED [None]
  - HYPERHIDROSIS [None]
  - RASH PRURITIC [None]
  - SKIN EXFOLIATION [None]
